FAERS Safety Report 5227394-1 (Version None)
Quarter: 2007Q1

REPORT INFORMATION
  Report Type: 
  Country: None (occurrence: None)
  Receive Date: 20061201
  Receipt Date: 20060925
  Transmission Date: 20070707
  Serious: No
  Sender: FDA-Public Use
  Company Number: US200609006529

PATIENT
  Age: 56 Year
  Sex: Female

DRUGS (4)
  1. CYMBALTA [Suspect]
     Indication: NERVE INJURY
     Dosage: SEE IMAGE
     Route: 048
     Dates: start: 20060101
  2. CYMBALTA [Suspect]
     Indication: NERVE INJURY
     Dosage: SEE IMAGE
     Route: 048
     Dates: start: 20060601
  3. DITROPAN XL [Concomitant]
  4. PRILOSEC [Concomitant]

REACTIONS (7)
  - ABNORMAL SLEEP-RELATED EVENT [None]
  - DYSARTHRIA [None]
  - INITIAL INSOMNIA [None]
  - MEDICATION ERROR [None]
  - MEMORY IMPAIRMENT [None]
  - VISION BLURRED [None]
  - VISUAL DISTURBANCE [None]
